FAERS Safety Report 8021493-7 (Version None)
Quarter: 2011Q4

REPORT INFORMATION
  Report Type: 
  Country: None (occurrence: None)
  Receive Date: 20111230
  Receipt Date: 20111202
  Transmission Date: 20120403
  Serious: Yes (Other)
  Sender: FDA-Public Use
  Company Number: 11-0715

PATIENT
  Age: 31 Year
  Sex: Female
  Weight: 66.2252 kg

DRUGS (2)
  1. AZO STANDARD MAXIMUM STRENGTH [Suspect]
     Indication: URINARY TRACT INFECTION
     Dosage: 2 TABLETS, 3 X DAY, ORAL
     Route: 048
     Dates: start: 20111130, end: 20111201
  2. BACTRIM [Concomitant]

REACTIONS (5)
  - DYSPNOEA [None]
  - PRURITUS [None]
  - DRUG HYPERSENSITIVITY [None]
  - HEADACHE [None]
  - LOSS OF CONSCIOUSNESS [None]
